FAERS Safety Report 18620020 (Version 1)
Quarter: 2020Q4

REPORT INFORMATION
  Report Type: Spontaneous
  Country: US (occurrence: US)
  Receive Date: 20201215
  Receipt Date: 20201215
  Transmission Date: 20210114
  Serious: Yes (Hospitalization, Other)
  Sender: FDA-Public Use
  Company Number: US-MYLANLABS-2020M1102396

PATIENT
  Age: 33 Year
  Sex: Female

DRUGS (9)
  1. LETROZOLE. [Suspect]
     Active Substance: LETROZOLE
     Indication: PALLIATIVE CARE
     Dosage: UNK
     Route: 065
     Dates: start: 20190424
  2. DOCETAXEL. [Suspect]
     Active Substance: DOCETAXEL
     Indication: CHEMOTHERAPY
     Dosage: UNK
     Route: 065
     Dates: start: 20200211
  3. FASLODEX [Suspect]
     Active Substance: FULVESTRANT
     Indication: PRODUCT USED FOR UNKNOWN INDICATION
     Dosage: UNK
     Route: 065
     Dates: start: 20191227
  4. ERIBULIN [Suspect]
     Active Substance: ERIBULIN
     Indication: PRODUCT USED FOR UNKNOWN INDICATION
     Dosage: UNK
     Route: 065
     Dates: start: 20200813
  5. ADRIAMYCIN [Suspect]
     Active Substance: DOXORUBICIN HYDROCHLORIDE
     Indication: CHEMOTHERAPY
     Dosage: UNK
     Route: 065
     Dates: start: 20200211
  6. ABRAXANE [Suspect]
     Active Substance: PACLITAXEL
     Indication: PRODUCT USED FOR UNKNOWN INDICATION
     Dosage: UNK
     Route: 065
     Dates: start: 20200629
  7. PALBOCICLIB [Suspect]
     Active Substance: PALBOCICLIB
     Indication: PALLIATIVE CARE
     Dosage: UNK
     Route: 065
     Dates: start: 20190424
  8. CYCLOPHOSPHAMIDE. [Suspect]
     Active Substance: CYCLOPHOSPHAMIDE
     Indication: CHEMOTHERAPY
     Dosage: UNK
     Route: 065
     Dates: start: 20200211
  9. LUPRON [Suspect]
     Active Substance: LEUPROLIDE ACETATE
     Indication: PALLIATIVE CARE
     Dosage: UNK
     Route: 065
     Dates: start: 20190424

REACTIONS (8)
  - Metastases to central nervous system [Unknown]
  - Pulmonary mass [Not Recovered/Not Resolved]
  - Drug-induced liver injury [Unknown]
  - Disease progression [Unknown]
  - Metastases to spine [Unknown]
  - Metastases to bone [Unknown]
  - Lung infiltration [Unknown]
  - Hypoxia [Unknown]
